FAERS Safety Report 14826578 (Version 1)
Quarter: 2018Q2

REPORT INFORMATION
  Report Type: Spontaneous
  Country: US (occurrence: US)
  Receive Date: 20180430
  Receipt Date: 20180430
  Transmission Date: 20180711
  Serious: Yes (Other)
  Sender: FDA-Public Use
  Company Number: US-MYLANLABS-2018M1025701

PATIENT
  Age: 86 Year
  Sex: Male
  Weight: 68.2 kg

DRUGS (2)
  1. MUSE [Suspect]
     Active Substance: ALPROSTADIL
     Indication: ERECTILE DYSFUNCTION
     Dosage: 1000 ?G, UNK AS NEEDED
     Route: 066
     Dates: start: 201712
  2. VITAMIN PILLS [Concomitant]
     Indication: SUPPLEMENTATION THERAPY
     Dosage: UNK

REACTIONS (2)
  - Wrong technique in device usage process [Recovered/Resolved]
  - Penile haemorrhage [Recovered/Resolved]

NARRATIVE: CASE EVENT DATE: 201712
